FAERS Safety Report 8224404-4 (Version None)
Quarter: 2012Q1

REPORT INFORMATION
  Report Type: 
  Country: None (occurrence: None)
  Receive Date: 20120321
  Receipt Date: 20120319
  Transmission Date: 20120608
  Serious: Yes (Death, Other)
  Sender: FDA-Public Use
  Company Number: US-BAYER-2012-010275

PATIENT
  Sex: Female

DRUGS (7)
  1. VITAMIN D [Concomitant]
     Dosage: 1000 U, QD
     Dates: start: 20100827
  2. VIACTIV [CALCIUM] [Concomitant]
     Dosage: 1 DF, UNK
     Dates: start: 20111107
  3. VENLAFAXINE [Concomitant]
     Dosage: 1 DF, BID
     Dates: start: 20100827
  4. MULTI-DAY TABS [Concomitant]
     Dosage: 1 DF, QD
     Dates: start: 20100827
  5. BETASERON [Suspect]
     Indication: RELAPSING-REMITTING MULTIPLE SCLEROSIS
     Dosage: 0.25 MG, UNK
     Route: 058
     Dates: start: 20010301, end: 20120127
  6. ACTONEL [Concomitant]
     Dosage: 35 MG, UNK
     Dates: start: 20111004
  7. TAMOXIFEN CITRATE [Concomitant]
     Dosage: 1 DF, QD
     Dates: start: 20110312

REACTIONS (2)
  - MYOCARDIAL INFARCTION [None]
  - BREAST CANCER [None]
